FAERS Safety Report 12933739 (Version 2)
Quarter: 2016Q4

REPORT INFORMATION
  Report Type: Spontaneous
  Country: PL (occurrence: PL)
  Receive Date: 20161111
  Receipt Date: 20161201
  Transmission Date: 20170207
  Serious: Yes (Hospitalization, Other)
  Sender: FDA-Public Use
  Company Number: PL-GILEAD-2016-0241550

PATIENT
  Age: 49 Year
  Sex: Male
  Weight: 78 kg

DRUGS (4)
  1. CARVEDILOL. [Concomitant]
     Active Substance: CARVEDILOL
  2. COPEGUS [Concomitant]
     Active Substance: RIBAVIRIN
  3. HARVONI [Suspect]
     Active Substance: LEDIPASVIR\SOFOSBUVIR
     Indication: HEPATITIS C
     Dosage: 1 UNK, UNK
     Route: 065
  4. FRAXIPARIN                         /00889603/ [Concomitant]
     Active Substance: HEPARIN CALCIUM

REACTIONS (9)
  - Ascites [Recovered/Resolved]
  - Asthenia [Unknown]
  - Ascites [Unknown]
  - Pleural effusion [Unknown]
  - Abdominal pain [Unknown]
  - Pleural effusion [Recovered/Resolved]
  - Diarrhoea [Unknown]
  - Asthenia [Unknown]
  - Pyrexia [Unknown]

NARRATIVE: CASE EVENT DATE: 201410
